FAERS Safety Report 18480522 (Version 5)
Quarter: 2021Q1

REPORT INFORMATION
  Report Type: Spontaneous
  Country: US (occurrence: US)
  Receive Date: 20201109
  Receipt Date: 20210216
  Transmission Date: 20210419
  Serious: Yes (Other)
  Sender: FDA-Public Use
  Company Number: US-PFIZER INC-2020435060

PATIENT
  Age: 42 Year
  Sex: Female

DRUGS (3)
  1. XELJANZ XR [Suspect]
     Active Substance: TOFACITINIB CITRATE
     Indication: RHEUMATOID ARTHRITIS
     Dosage: 11 MG
     Dates: start: 20201016, end: 202010
  2. XELJANZ XR [Suspect]
     Active Substance: TOFACITINIB CITRATE
     Dosage: 11 MG
     Dates: start: 20201106
  3. XELJANZ XR [Suspect]
     Active Substance: TOFACITINIB CITRATE
     Dosage: 11 MG
     Dates: start: 20201026, end: 2020

REACTIONS (8)
  - Therapeutic product effect incomplete [Unknown]
  - Gingival bleeding [Unknown]
  - Weight increased [Unknown]
  - Haematochezia [Unknown]
  - Wound haemorrhage [Unknown]
  - Fungal infection [Unknown]
  - Pain in extremity [Not Recovered/Not Resolved]
  - Swelling face [Unknown]

NARRATIVE: CASE EVENT DATE: 2020
